FAERS Safety Report 8375875-4 (Version None)
Quarter: 2012Q1

REPORT INFORMATION
  Report Type: 
  Country: None (occurrence: None)
  Receive Date: 20120323
  Receipt Date: 20110707
  Transmission Date: 20120608
  Serious: Yes (Other)
  Sender: FDA-Public Use
  Company Number: 163-21880-11070838

PATIENT
  Age: 66 Year
  Sex: Male

DRUGS (3)
  1. REVLIMID [Suspect]
     Indication: MULTIPLE MYELOMA
     Dosage: 25 MG, 1 IN 1 D, PO, 20-10MG, DAILY, PO, 5 MG, 1 IN 1 D, PO
     Route: 048
     Dates: start: 20091001
  2. REVLIMID [Suspect]
     Indication: MULTIPLE MYELOMA
     Dosage: 25 MG, 1 IN 1 D, PO, 20-10MG, DAILY, PO, 5 MG, 1 IN 1 D, PO
     Route: 048
     Dates: start: 20090401
  3. REVLIMID [Suspect]
     Indication: MULTIPLE MYELOMA
     Dosage: 25 MG, 1 IN 1 D, PO, 20-10MG, DAILY, PO, 5 MG, 1 IN 1 D, PO
     Route: 048
     Dates: start: 20110701

REACTIONS (2)
  - NEUROLOGICAL SYMPTOM [None]
  - CONVULSION [None]
